FAERS Safety Report 17962466 (Version 1)
Quarter: 2020Q2

REPORT INFORMATION
  Report Type: Spontaneous
  Country: US (occurrence: US)
  Receive Date: 20200629
  Receipt Date: 20200629
  Transmission Date: 20200714
  Serious: Yes (Hospitalization)
  Sender: FDA-Public Use
  Company Number: None

PATIENT
  Sex: Female

DRUGS (1)
  1. DOFETILIDE 500 UGM [Suspect]
     Active Substance: DOFETILIDE
     Indication: HYPERTENSION
     Route: 048
     Dates: start: 20180123

REACTIONS (3)
  - Pancreatic carcinoma [None]
  - Hepatic cancer [None]
  - Dehydration [None]
